FAERS Safety Report 9744983 (Version 2)
Quarter: 2013Q4

REPORT INFORMATION
  Report Type: Spontaneous
  Country: US (occurrence: US)
  Receive Date: 20131211
  Receipt Date: 20131218
  Transmission Date: 20140711
  Serious: No
  Sender: FDA-Public Use
  Company Number: US-BIOGENIDEC-2013BI116941

PATIENT
  Sex: Male

DRUGS (3)
  1. AVONEX [Suspect]
     Indication: MULTIPLE SCLEROSIS
     Route: 030
  2. AVONEX [Suspect]
     Indication: MULTIPLE SCLEROSIS
     Route: 030
     Dates: start: 20021024, end: 20051026
  3. AVONEX [Suspect]
     Indication: MULTIPLE SCLEROSIS
     Route: 030
     Dates: start: 20060105

REACTIONS (6)
  - Hypoaesthesia [Recovered/Resolved]
  - Back pain [Unknown]
  - General physical health deterioration [Not Recovered/Not Resolved]
  - Progressive relapsing multiple sclerosis [Unknown]
  - Paraesthesia [Recovered/Resolved]
  - Fatigue [Unknown]
